FAERS Safety Report 10618577 (Version 2)
Quarter: 2014Q4

REPORT INFORMATION
  Report Type: Report from Study
  Country: CO (occurrence: CO)
  Receive Date: 20141202
  Receipt Date: 20141208
  Transmission Date: 20150529
  Serious: Yes (Hospitalization, Disabling)
  Sender: FDA-Public Use
  Company Number: CO-AMGEN-COLSL2014092769

PATIENT
  Age: 54 Year
  Sex: Female
  Weight: 62 kg

DRUGS (1)
  1. MIMPARA [Suspect]
     Active Substance: CINACALCET HYDROCHLORIDE
     Indication: HYPERPARATHYROIDISM SECONDARY
     Dosage: 30 MG, QD
     Route: 048
     Dates: start: 20141022

REACTIONS (1)
  - Gastroenteritis [Not Recovered/Not Resolved]

NARRATIVE: CASE EVENT DATE: 20141105
